FAERS Safety Report 17217846 (Version 1)
Quarter: 2019Q4

REPORT INFORMATION
  Report Type: Spontaneous
  Country: GB (occurrence: GB)
  Receive Date: 20191231
  Receipt Date: 20191231
  Transmission Date: 20200122
  Serious: Yes (Hospitalization)
  Sender: FDA-Public Use
  Company Number: GB-TEVA-2019-GB-1159507

PATIENT
  Age: 89 Year
  Sex: Female

DRUGS (10)
  1. TRIMETHOPRIM. [Suspect]
     Active Substance: TRIMETHOPRIM
     Indication: GENITOURINARY TRACT INFECTION
     Dosage: 400 MG
     Route: 048
     Dates: start: 20191103, end: 20191106
  2. DIGOXIN. [Concomitant]
     Active Substance: DIGOXIN
  3. BISOPROLOL FUMARATE. [Concomitant]
     Active Substance: BISOPROLOL FUMARATE
  4. ALLOPURINOL. [Concomitant]
     Active Substance: ALLOPURINOL
  5. ATORVASTATIN [Concomitant]
     Active Substance: ATORVASTATIN
  6. CETIRIZINE DIHYDROCHLORIDE [Concomitant]
     Active Substance: CETIRIZINE HYDROCHLORIDE
  7. LEVOTHYROXINE SODIUM. [Concomitant]
     Active Substance: LEVOTHYROXINE SODIUM
  8. RIVAROXABAN [Concomitant]
     Active Substance: RIVAROXABAN
  9. FUROSEMIDE SODIUM [Concomitant]
     Active Substance: FUROSEMIDE SODIUM
  10. LINAGLIPTIN [Concomitant]
     Active Substance: LINAGLIPTIN

REACTIONS (3)
  - Rash [Unknown]
  - Mucosal ulceration [Unknown]
  - Stevens-Johnson syndrome [Not Recovered/Not Resolved]

NARRATIVE: CASE EVENT DATE: 20191105
